FAERS Safety Report 6422059-2 (Version None)
Quarter: 2009Q4

REPORT INFORMATION
  Report Type: 
  Country: None (occurrence: None)
  Receive Date: 20091030
  Receipt Date: 20091019
  Transmission Date: 20100525
  Serious: Yes (Other)
  Sender: FDA-Public Use
  Company Number: GB-ROCHE-663734

PATIENT
  Age: 44 Year
  Sex: Male

DRUGS (2)
  1. TAMIFLU [Suspect]
     Indication: DRUG USE FOR UNKNOWN INDICATION
     Route: 065
  2. ACETAMINOPHEN [Concomitant]

REACTIONS (4)
  - NYSTAGMUS [None]
  - PARAESTHESIA [None]
  - TINNITUS [None]
  - VERTIGO [None]
